FAERS Safety Report 14518599 (Version 1)
Quarter: 2018Q1

REPORT INFORMATION
  Report Type: Spontaneous
  Country: US (occurrence: US)
  Receive Date: 20180212
  Receipt Date: 20180212
  Transmission Date: 20180509
  Serious: No
  Sender: FDA-Public Use
  Company Number: US-PFIZER INC-2018061313

PATIENT
  Age: 67 Year
  Sex: Male

DRUGS (2)
  1. METHOTREXATE SODIUM. [Suspect]
     Active Substance: METHOTREXATE SODIUM
     Dosage: UNK
  2. LOSARTAN. [Suspect]
     Active Substance: LOSARTAN
     Dosage: UNK

REACTIONS (1)
  - Drug hypersensitivity [Unknown]
